FAERS Safety Report 19675436 (Version 1)
Quarter: 2021Q3

REPORT INFORMATION
  Report Type: Report from Study
  Country: PL (occurrence: PL)
  Receive Date: 20210809
  Receipt Date: 20210809
  Transmission Date: 20211014
  Serious: Yes (Death)
  Sender: FDA-Public Use
  Company Number: PL-PFIZER INC-2009202848

PATIENT
  Age: 73 Year
  Sex: Male
  Weight: 78 kg

DRUGS (5)
  1. AXITINIB [Suspect]
     Active Substance: AXITINIB
     Indication: NON-SMALL CELL LUNG CANCER
     Dosage: 5 MG, 2X/DAY, INTERVAL EVERY DAY
     Route: 048
     Dates: start: 20090225, end: 20090415
  2. BUFLOMEDIL HYDROCHLORIDE [Concomitant]
     Active Substance: BUFLOMEDIL HYDROCHLORIDE
     Indication: ARTERIOSCLEROSIS
     Dosage: 150 MG, 1X/DAY
     Route: 048
  3. PENTOXIFYLLINE. [Concomitant]
     Active Substance: PENTOXIFYLLINE
     Indication: ARTERIOSCLEROSIS
     Dosage: 600 MG, 1X/DAY
     Route: 048
  4. PACLITAXEL. [Suspect]
     Active Substance: PACLITAXEL
     Indication: NON-SMALL CELL LUNG CANCER
     Dosage: 378 MG, CYCLIC, EVERY 3 WEEKS
     Route: 042
     Dates: start: 20090225, end: 20090318
  5. CARBOPLATIN. [Suspect]
     Active Substance: CARBOPLATIN
     Indication: NON-SMALL CELL LUNG CANCER
     Dosage: 682 MG, CYCLIC, EVERY 3 WEEKS
     Route: 042
     Dates: start: 20090225, end: 20090318

REACTIONS (1)
  - Death [Fatal]

NARRATIVE: CASE EVENT DATE: 20090416
